FAERS Safety Report 17250827 (Version 1)
Quarter: 2019Q4

REPORT INFORMATION
  Report Type: Spontaneous
  Country: US (occurrence: US)
  Receive Date: 20191213
  Receipt Date: 20191213
  Transmission Date: 20200122
  Serious: Yes (Hospitalization)
  Sender: FDA-Public Use
  Company Number: None

PATIENT
  Age: 54 Year
  Sex: Female
  Weight: 141 kg

DRUGS (1)
  1. SULFAMETHOXAZOLE/TRIMETHOPRIM (SULFAMETHOXAZOLE800MG/TRIMETHOPRIME 160 [Suspect]
     Active Substance: SULFAMETHOXAZOLE\TRIMETHOPRIM
     Indication: ANGIOEDEMA
     Dosage: ?          OTHER DOSE:800/160 MG;?
     Route: 048
     Dates: start: 20191102, end: 20191106

REACTIONS (3)
  - Wheezing [None]
  - Angioedema [None]
  - Haemorrhage [None]

NARRATIVE: CASE EVENT DATE: 20191106
